FAERS Safety Report 14113506 (Version 1)
Quarter: 2017Q4

REPORT INFORMATION
  Report Type: Report from Study
  Country: DE (occurrence: DE)
  Receive Date: 20171023
  Receipt Date: 20171023
  Transmission Date: 20180321
  Serious: Yes (Other)
  Sender: FDA-Public Use
  Company Number: DE-ROCHE-2010777

PATIENT
  Age: 7 Year
  Sex: Male

DRUGS (2)
  1. SOMATROPIN. [Suspect]
     Active Substance: SOMATROPIN
     Indication: ATAXIA TELANGIECTASIA
  2. SOMATROPIN. [Suspect]
     Active Substance: SOMATROPIN
     Indication: GROWTH RETARDATION
     Route: 058

REACTIONS (4)
  - Intentional product use issue [Unknown]
  - Cerebral haemorrhage [Unknown]
  - Cerebral capillary telangiectasia [Unknown]
  - Off label use [Unknown]
